FAERS Safety Report 9161409 (Version 1)
Quarter: 2013Q1

REPORT INFORMATION
  Report Type: Spontaneous
  Country: US (occurrence: US)
  Receive Date: 20130313
  Receipt Date: 20130313
  Transmission Date: 20140127
  Serious: No
  Sender: FDA-Public Use
  Company Number: US-009507513-1303USA005515

PATIENT
  Age: 48 None
  Sex: Female

DRUGS (2)
  1. ZETIA [Suspect]
     Dosage: UNK, BID
  2. ZETIA [Suspect]
     Dosage: UNK, HS
     Dates: start: 201210, end: 201211

REACTIONS (3)
  - Migraine [Unknown]
  - Drug prescribing error [Unknown]
  - Inappropriate schedule of drug administration [Unknown]
